FAERS Safety Report 4527862-1 (Version None)
Quarter: 2004Q4

REPORT INFORMATION
  Report Type: 
  Country: None (occurrence: None)
  Receive Date: 20041123
  Receipt Date: 20040223
  Transmission Date: 20050328
  Serious: Yes (Hospitalization)
  Sender: FDA-Public Use
  Company Number: HQ5730811DEC2002

PATIENT
  Age: 43 Year
  Sex: Male
  Weight: 76.8 kg

DRUGS (1)
  1. ZOSYN [Suspect]
     Indication: PSEUDOMONAS INFECTION
     Dosage: 4.5 GRAMS EVERY 8 HOURS, INTRAVENOUS
     Route: 042
     Dates: start: 20020925, end: 20021014

REACTIONS (7)
  - ABDOMINAL DISCOMFORT [None]
  - ALANINE AMINOTRANSFERASE INCREASED [None]
  - BLOOD ALKALINE PHOSPHATASE INCREASED [None]
  - BONE PAIN [None]
  - HYPERHIDROSIS [None]
  - MALAISE [None]
  - NEUTROPENIA [None]
